FAERS Safety Report 17639124 (Version 7)
Quarter: 2021Q2

REPORT INFORMATION
  Report Type: Report from Study
  Country: None (occurrence: JP)
  Receive Date: 20200407
  Receipt Date: 20210609
  Transmission Date: 20210716
  Serious: Yes (Hospitalization, Other)
  Sender: FDA-Public Use
  Company Number: JP-ABBVIE-20P-087-3354059-00

PATIENT
  Age: 69 Year
  Sex: Male
  Weight: 97 kg

DRUGS (9)
  1. KINEDAK [Concomitant]
     Active Substance: EPALRESTAT
     Indication: BULBOSPINAL MUSCULAR ATROPHY CONGENITAL
     Dosage: 150 MILLIGRAM
     Route: 065
  2. RINDERON VG [Concomitant]
     Active Substance: BETAMETHASONE VALERATE\GENTAMICIN SULFATE
     Indication: ECZEMA
     Dosage: 10 GRAM
     Route: 065
     Dates: start: 20190328, end: 20200201
  3. LEUPRORELIN [Suspect]
     Active Substance: LEUPROLIDE ACETATE
     Indication: BULBOSPINAL MUSCULAR ATROPHY CONGENITAL
     Dosage: 11.25 MILLIGRAM, Q3MONTHS
     Route: 058
     Dates: start: 20171101, end: 20200108
  4. TRANCOLON [Concomitant]
     Active Substance: MEPENZOLATE BROMIDE
     Indication: BULBOSPINAL MUSCULAR ATROPHY CONGENITAL
     Dosage: 22.5 MILLIGRAM
     Route: 065
     Dates: end: 20200201
  5. LYRICA [Concomitant]
     Active Substance: PREGABALIN
     Indication: BULBOSPINAL MUSCULAR ATROPHY CONGENITAL
     Dosage: 50 MILLIGRAM
     Route: 065
     Dates: end: 20180905
  6. AMITIZA [Concomitant]
     Active Substance: LUBIPROSTONE
     Indication: BULBOSPINAL MUSCULAR ATROPHY CONGENITAL
     Dosage: 48 MICROGRAM
     Route: 065
     Dates: start: 20180905, end: 20181122
  7. SUMILU [Concomitant]
     Active Substance: FELBINAC
     Indication: BULBOSPINAL MUSCULAR ATROPHY CONGENITAL
     Dosage: 40 GRAM
     Route: 065
     Dates: end: 20181031
  8. MOHRUS [Concomitant]
     Active Substance: KETOPROFEN
     Indication: BULBOSPINAL MUSCULAR ATROPHY CONGENITAL
     Dosage: 20 MILLIGRAM
     Route: 065
     Dates: end: 20200201
  9. VITAMEDIN [Concomitant]
     Active Substance: CYANOCOBALAMIN\PYRIDOXINE HYDROCHLORIDE\THIAMINE
     Indication: BULBOSPINAL MUSCULAR ATROPHY CONGENITAL
     Dosage: 75 MILLIGRAM
     Route: 065
     Dates: start: 20180502, end: 20200201

REACTIONS (2)
  - Pneumonia aspiration [Recovered/Resolved with Sequelae]
  - Infectious pleural effusion [Recovered/Resolved with Sequelae]

NARRATIVE: CASE EVENT DATE: 20200201
